FAERS Safety Report 4303396-4 (Version None)
Quarter: 2004Q1

REPORT INFORMATION
  Report Type: 
  Country: None (occurrence: None)
  Receive Date: 20040223
  Receipt Date: 20040211
  Transmission Date: 20041129
  Serious: Yes (Other)
  Sender: FDA-Public Use
  Company Number: HQWYE575027JAN04

PATIENT
  Age: 68 Year
  Sex: Male

DRUGS (5)
  1. AMIODARONE HCL [Suspect]
     Indication: ATRIAL FIBRILLATION
     Dosage: 200 MG 1X PER 1 DAY
     Dates: start: 20020801
  2. AMIODARONE HCL [Suspect]
     Indication: ATRIAL FLUTTER
     Dosage: 200 MG 1X PER 1 DAY
     Dates: start: 20020801
  3. ATACAND [Concomitant]
  4. PHYSIOGENS ^GIULINI^ (MOXONIDINE) [Concomitant]
  5. CONCOR (BISOPROLOL) [Concomitant]

REACTIONS (6)
  - ALVEOLITIS [None]
  - BLOOD LACTATE DEHYDROGENASE INCREASED [None]
  - C-REACTIVE PROTEIN INCREASED [None]
  - DYSPNOEA [None]
  - RED BLOOD CELL SEDIMENTATION RATE INCREASED [None]
  - RESPIRATORY FAILURE [None]
